FAERS Safety Report 24109567 (Version 2)
Quarter: 2024Q3

REPORT INFORMATION
  Report Type: Spontaneous
  Country: US (occurrence: US)
  Receive Date: 20240718
  Receipt Date: 20240801
  Transmission Date: 20241016
  Serious: No
  Sender: PFIZER
  Company Number: US-PFIZER INC-202400216531

PATIENT
  Age: 60 Year
  Sex: Female
  Weight: 69.841 kg

DRUGS (5)
  1. PAXLOVID [Suspect]
     Active Substance: NIRMATRELVIR\RITONAVIR
     Indication: COVID-19 treatment
     Dosage: [NIRMATRELVIR 300 MG]/[RITONAVIR 100 MG]; 2X/DAY
     Route: 048
     Dates: start: 20240703, end: 20240707
  2. PROPRANOLOL [Concomitant]
     Active Substance: PROPRANOLOL HYDROCHLORIDE
     Indication: Arrhythmia
     Dosage: 60 MG, 1X/DAY (AT BEDTIME)
  3. PROPRANOLOL [Concomitant]
     Active Substance: PROPRANOLOL HYDROCHLORIDE
     Indication: Migraine
  4. IBUPROFEN [Concomitant]
     Active Substance: IBUPROFEN
     Indication: Hypertension
     Dosage: 400 MG, CYCLIC (EVERY 6 HOURS, 3 DOSES PER DAY)
  5. IBUPROFEN [Concomitant]
     Active Substance: IBUPROFEN
     Indication: COVID-19

REACTIONS (2)
  - COVID-19 [Recovered/Resolved]
  - Disease recurrence [Recovered/Resolved]

NARRATIVE: CASE EVENT DATE: 20240715
